FAERS Safety Report 13071390 (Version 5)
Quarter: 2017Q1

REPORT INFORMATION
  Report Type: Report from Study
  Country: AU (occurrence: AU)
  Receive Date: 20161229
  Receipt Date: 20170228
  Transmission Date: 20170428
  Serious: Yes (Hospitalization, Other)
  Sender: FDA-Public Use
  Company Number: AU-BAYER-2016-122023

PATIENT
  Age: 78 Year
  Sex: Female

DRUGS (26)
  1. ADEMPAS [Suspect]
     Active Substance: RIOCIGUAT
     Indication: PULMONARY HYPERTENSION
     Dosage: 1 MG, TID
     Route: 048
     Dates: end: 20151201
  2. BIOTIN [Suspect]
     Active Substance: BIOTIN
     Dosage: 0.5 DF, UNK
  3. BIOTIN [Suspect]
     Active Substance: BIOTIN
     Dosage: 0.25 DF, UNK
  4. NEXIUM [Concomitant]
     Active Substance: ESOMEPRAZOLE MAGNESIUM
     Indication: GASTRIC HAEMORRHAGE
  5. ADEMPAS [Suspect]
     Active Substance: RIOCIGUAT
     Indication: PULMONARY HYPERTENSION
     Dosage: DAILY DOSE 5.5 MG
     Route: 048
     Dates: end: 20160830
  6. ADEMPAS [Suspect]
     Active Substance: RIOCIGUAT
     Indication: PULMONARY HYPERTENSION
     Dosage: UNK
  7. ADEMPAS [Suspect]
     Active Substance: RIOCIGUAT
     Indication: PULMONARY HYPERTENSION
     Dosage: 2.5 MG, TID
     Route: 048
  8. ADEMPAS [Suspect]
     Active Substance: RIOCIGUAT
     Indication: PULMONARY HYPERTENSION
     Dosage: UNK
     Dates: start: 20150814
  9. VERAPAMIL [Suspect]
     Active Substance: VERAPAMIL HYDROCHLORIDE
     Indication: ARRHYTHMIA
     Dosage: UNK
     Route: 048
  10. ADEMPAS [Suspect]
     Active Substance: RIOCIGUAT
     Indication: PULMONARY HYPERTENSION
     Dosage: 0.5MG VARIED DOSES
     Route: 048
     Dates: end: 20151021
  11. ADEMPAS [Suspect]
     Active Substance: RIOCIGUAT
     Indication: PULMONARY HYPERTENSION
     Dosage: 1 MG, UNK
     Route: 048
  12. ADEMPAS [Suspect]
     Active Substance: RIOCIGUAT
     Indication: PULMONARY HYPERTENSION
     Dosage: 2.5 MG, TID
     Route: 048
  13. ADEMPAS [Suspect]
     Active Substance: RIOCIGUAT
     Indication: PULMONARY HYPERTENSION
     Dosage: 0.5 MG, TID
     Route: 048
     Dates: start: 20150913
  14. RANITIDINE. [Concomitant]
     Active Substance: RANITIDINE
     Indication: GASTROOESOPHAGEAL REFLUX DISEASE
     Dosage: UNK
  15. ADEMPAS [Suspect]
     Active Substance: RIOCIGUAT
     Indication: PULMONARY HYPERTENSION
     Dosage: 0.5MG MANE + MIDI, 1.0MG NOCTE
     Route: 048
  16. ADEMPAS [Suspect]
     Active Substance: RIOCIGUAT
     Indication: PULMONARY HYPERTENSION
     Dosage: 1.5 MG, TID
     Route: 048
     Dates: start: 201604
  17. VERAPAMIL [Suspect]
     Active Substance: VERAPAMIL HYDROCHLORIDE
     Indication: ARRHYTHMIA
     Dosage: UNK
  18. CODEINE PHOSPHATE [Concomitant]
     Active Substance: CODEINE PHOSPHATE
     Indication: DIARRHOEA
     Dosage: UNK
  19. ADEMPAS [Suspect]
     Active Substance: RIOCIGUAT
     Indication: PULMONARY HYPERTENSION
     Dosage: 2 MG, TID
     Route: 048
     Dates: start: 20160831
  20. ADEMPAS [Suspect]
     Active Substance: RIOCIGUAT
     Indication: PULMONARY HYPERTENSION
     Dosage: 2 MG, TID
     Route: 048
     Dates: start: 20160905
  21. ADEMPAS [Suspect]
     Active Substance: RIOCIGUAT
     Indication: PULMONARY HYPERTENSION
     Dosage: 2.5 MG, TID
     Route: 048
     Dates: start: 20170213
  22. SERC [Suspect]
     Active Substance: BETAHISTINE HYDROCHLORIDE
     Indication: DIZZINESS
     Dosage: UNK
     Route: 048
  23. BIOTIN [Suspect]
     Active Substance: BIOTIN
     Dosage: UNK
  24. ADEMPAS [Suspect]
     Active Substance: RIOCIGUAT
     Indication: PULMONARY HYPERTENSION
     Dosage: UNK
     Dates: start: 20160905
  25. ZANTAC [Suspect]
     Active Substance: RANITIDINE HYDROCHLORIDE
     Indication: GASTROOESOPHAGEAL REFLUX DISEASE
     Dosage: UNK
  26. IMODIUM [LOPERAMIDE,SIMETICONE] [Concomitant]
     Indication: DIARRHOEA

REACTIONS (36)
  - Arthralgia [Recovering/Resolving]
  - Discomfort [Unknown]
  - Dysphonia [None]
  - Fall [None]
  - Epistaxis [Recovered/Resolved]
  - Feeling abnormal [None]
  - Nail disorder [Recovering/Resolving]
  - Balance disorder [Recovering/Resolving]
  - Weight decreased [None]
  - Neurogenic bowel [Recovering/Resolving]
  - Sensory loss [Recovering/Resolving]
  - Dyspnoea [None]
  - Blood iron abnormal [None]
  - Malaise [None]
  - Loss of consciousness [None]
  - Serum ferritin decreased [None]
  - Drug intolerance [None]
  - Hypotension [None]
  - Arrhythmia [Recovered/Resolved]
  - Dyspnoea [None]
  - Serum ferritin decreased [None]
  - Stress [None]
  - Constipation [Recovering/Resolving]
  - Gastric haemorrhage [None]
  - Dizziness [None]
  - Cauda equina syndrome [Recovering/Resolving]
  - Complication associated with device [None]
  - Anal incontinence [Recovering/Resolving]
  - Drug titration error [Unknown]
  - Diarrhoea [Recovering/Resolving]
  - Alopecia [Recovering/Resolving]
  - Mineral supplementation [None]
  - Gait disturbance [Recovering/Resolving]
  - Product use issue [None]
  - Blood phosphorus decreased [Unknown]
  - Blood pressure diastolic decreased [None]

NARRATIVE: CASE EVENT DATE: 20160616
